FAERS Safety Report 13902983 (Version 1)
Quarter: 2017Q3

REPORT INFORMATION
  Report Type: Spontaneous
  Country: PL (occurrence: PL)
  Receive Date: 20170824
  Receipt Date: 20170824
  Transmission Date: 20171127
  Serious: Yes (Life-Threatening, Other)
  Sender: FDA-Public Use
  Company Number: PL-CIPLA LTD.-2017PL14770

PATIENT

DRUGS (2)
  1. PACLITAXEL. [Concomitant]
     Active Substance: PACLITAXEL
     Indication: OVARIAN EPITHELIAL CANCER
     Dosage: 175 MG/M2 LASTING 3 H, CYCLE LASTING 3 H WITH 3 WEEKS BREAK
     Route: 065
     Dates: start: 201303, end: 201408
  2. CARBOPLATIN. [Suspect]
     Active Substance: CARBOPLATIN
     Indication: OVARIAN EPITHELIAL CANCER
     Dosage: 400 MG/M2 PER CYCLE, WITH 3 WEEKS BETWEEN CYCLES
     Route: 065
     Dates: start: 201303

REACTIONS (1)
  - Palmar-plantar erythrodysaesthesia syndrome [Unknown]
